FAERS Safety Report 16442963 (Version 1)
Quarter: 2019Q2

REPORT INFORMATION
  Report Type: Spontaneous
  Country: DE (occurrence: DE)
  Receive Date: 20190617
  Receipt Date: 20190617
  Transmission Date: 20190711
  Serious: Yes (Other)
  Sender: FDA-Public Use
  Company Number: PHHY2019DE133722

PATIENT
  Age: 54 Year
  Sex: Female
  Weight: 67 kg

DRUGS (2)
  1. METOHEXAL SUCC [Suspect]
     Active Substance: METOPROLOL SUCCINATE
     Indication: PRODUCT USED FOR UNKNOWN INDICATION
     Dosage: 23.5 MG, QD
     Route: 048
     Dates: start: 20160101
  2. METOHEXAL SUCC [Suspect]
     Active Substance: METOPROLOL SUCCINATE
     Dosage: 11.75 MG, QD
     Route: 048
     Dates: end: 20190430

REACTIONS (5)
  - Swelling [Recovered/Resolved]
  - Arrhythmia [Recovered/Resolved]
  - Sleep disorder [Recovered/Resolved]
  - Weight increased [Recovering/Resolving]
  - Bronchospasm [Recovered/Resolved]

NARRATIVE: CASE EVENT DATE: 20160101
